FAERS Safety Report 9074921 (Version 1)
Quarter: 2013Q1

REPORT INFORMATION
  Report Type: Spontaneous
  Country: US (occurrence: US)
  Receive Date: 20130129
  Receipt Date: 20130129
  Transmission Date: 20140127
  Serious: Yes (Hospitalization)
  Sender: FDA-Public Use
  Company Number: US-ROXANE LABORATORIES, INC.-2013-RO-00137RO

PATIENT
  Age: 8 Year
  Sex: Male

DRUGS (3)
  1. LITHIUM CARBONATE [Suspect]
     Indication: AGGRESSION
     Dosage: 300 MG
     Route: 048
  2. LITHIUM CARBONATE [Suspect]
     Dosage: 450 MG
     Route: 048
  3. LISDEXAMFETAMINE [Suspect]
     Indication: AGGRESSION
     Dosage: 50 MG
     Route: 048

REACTIONS (7)
  - Chest pain [Recovered/Resolved]
  - Tachycardia [Recovered/Resolved]
  - Hypertension [Recovered/Resolved]
  - Akathisia [Recovered/Resolved]
  - Dyskinesia [Recovered/Resolved]
  - Feeling jittery [Recovered/Resolved]
  - Agitation [Recovered/Resolved]
